FAERS Safety Report 25495798 (Version 1)
Quarter: 2025Q2

REPORT INFORMATION
  Report Type: Spontaneous
  Country: GB (occurrence: GB)
  Receive Date: 20250630
  Receipt Date: 20250630
  Transmission Date: 20250716
  Serious: Yes (Other)
  Sender: ORGANON
  Company Number: None

PATIENT
  Age: 69 Year
  Sex: Female
  Weight: 136 kg

DRUGS (26)
  1. MONTELUKAST SODIUM [Suspect]
     Active Substance: MONTELUKAST SODIUM
     Dosage: 10 MILLIGRAM, QD (ONE TO BE TAKEN AT NIGHT)
     Dates: start: 20250520
  2. DERMOL [NEOMYCIN SULFATE;PREDNISOLONE] [Concomitant]
     Indication: Ill-defined disorder
     Dates: start: 20250404
  3. FUROSEMIDE [Concomitant]
     Active Substance: FUROSEMIDE
     Indication: Ill-defined disorder
     Dosage: ONE TO BE TAKEN EACH MORNING
     Dates: start: 20250521
  4. FLUCLOXACILLIN [Concomitant]
     Active Substance: FLUCLOXACILLIN
     Indication: Ill-defined disorder
     Dosage: ONE TO BE TAKEN FOUR TIMES DAILY
     Dates: start: 20250506, end: 20250513
  5. AQUACEL AG EXTRA [Concomitant]
     Indication: Ill-defined disorder
     Dates: start: 20250519, end: 20250520
  6. URGOTUL [Concomitant]
     Indication: Ill-defined disorder
     Dates: start: 20250519, end: 20250520
  7. DOXYCYCLINE [Concomitant]
     Active Substance: DOXYCYCLINE
     Indication: Ill-defined disorder
     Dates: start: 20250521, end: 20250526
  8. POTASSIUM CITRATE [Concomitant]
     Active Substance: POTASSIUM CITRATE
     Indication: Ill-defined disorder
     Dates: start: 20250521, end: 20250522
  9. AQUACEL EXTRA [Concomitant]
     Indication: Ill-defined disorder
     Dates: start: 20250527, end: 20250528
  10. FLAMINAL FORTE [Concomitant]
     Indication: Ill-defined disorder
     Dates: start: 20250606, end: 20250607
  11. ACETAZOLAMIDE [Concomitant]
     Active Substance: ACETAZOLAMIDE
     Indication: Ill-defined disorder
     Dosage: ONE TO BE TAKEN DAILY
     Dates: start: 20240723
  12. AMITRIPTYLINE HYDROCHLORIDE [Concomitant]
     Active Substance: AMITRIPTYLINE HYDROCHLORIDE
     Indication: Ill-defined disorder
     Dosage: ONE TO BE TAKEN AT NIGHT
     Dates: start: 20240723
  13. AMLODIPINE [Concomitant]
     Active Substance: AMLODIPINE BESYLATE
     Indication: Ill-defined disorder
     Dosage: ONE TO BE TAKEN DAILY
     Dates: start: 20240723
  14. ATORVASTATIN [Concomitant]
     Active Substance: ATORVASTATIN
     Indication: Ill-defined disorder
     Dosage: ONE TO BE TAKEN DAILY
     Dates: start: 20240723
  15. CODEINE PHOSPHATE [Concomitant]
     Active Substance: CODEINE PHOSPHATE
     Indication: Ill-defined disorder
     Dosage: ONE OR TWO TO BE TAKEN FOUR TIMES DAILY WHEN R...
     Dates: start: 20240723
  16. EASYHALER [Concomitant]
     Indication: Ill-defined disorder
     Dates: start: 20240723
  17. BUDESONIDE\FORMOTEROL FUMARATE [Concomitant]
     Active Substance: BUDESONIDE\FORMOTEROL FUMARATE
     Indication: Ill-defined disorder
     Dosage: TWO PUFFS TWICE DAILY
     Dates: start: 20240723
  18. IBUPROFEN [Concomitant]
     Active Substance: IBUPROFEN
     Indication: Ill-defined disorder
     Dosage: APPLY THREE TIMES DAILY
     Dates: start: 20240723
  19. METFORMIN [Concomitant]
     Active Substance: METFORMIN HYDROCHLORIDE
     Indication: Ill-defined disorder
     Dosage: THREE TO BE TAKEN DAILY
     Dates: start: 20240723
  20. OMEPRAZOLE [Concomitant]
     Active Substance: OMEPRAZOLE
     Indication: Ill-defined disorder
     Dosage: ONE TO BE TAKEN DAILY
     Dates: start: 20240723
  21. ACETAMINOPHEN [Concomitant]
     Active Substance: ACETAMINOPHEN
     Indication: Ill-defined disorder
     Dosage: TWO TO BE TAKEN FOUR TIMES DAILY WHEN REQUIRED
     Dates: start: 20240723
  22. PREGABALIN [Concomitant]
     Active Substance: PREGABALIN
     Indication: Ill-defined disorder
     Dosage: ONE TO BE TAKEN TWICE DAILY
     Dates: start: 20240723
  23. SPIRIVA [Concomitant]
     Active Substance: TIOTROPIUM BROMIDE MONOHYDRATE
     Indication: Ill-defined disorder
     Dosage: TWO PUFFS ONCE DAILY
     Dates: start: 20240723
  24. MIRTAZAPINE [Concomitant]
     Active Substance: MIRTAZAPINE
     Indication: Ill-defined disorder
     Dosage: ONE TO BE TAKEN EVERY NIGHT
     Dates: start: 20240807
  25. LISINOPRIL [Concomitant]
     Active Substance: LISINOPRIL
     Indication: Ill-defined disorder
     Dosage: ONE TO BE TAKEN DAILY
     Dates: start: 20250106, end: 20250605
  26. BUPRENORPHINE [Concomitant]
     Active Substance: BUPRENORPHINE
     Indication: Ill-defined disorder
     Dosage: APPLY ONE WEEKLY (PATCHES)
     Dates: start: 20250203

REACTIONS (8)
  - Epistaxis [Recovered/Resolved with Sequelae]
  - Headache [Recovered/Resolved]
  - Eye swelling [Recovering/Resolving]
  - Conjunctivitis [Recovering/Resolving]
  - Glossodynia [Recovered/Resolved]
  - Eye discharge [Recovering/Resolving]
  - Mydriasis [Recovered/Resolved]
  - Vision blurred [Recovered/Resolved]

NARRATIVE: CASE EVENT DATE: 20250613
